FAERS Safety Report 9781316 (Version 1)
Quarter: 2013Q4

REPORT INFORMATION
  Report Type: Spontaneous
  Country: US (occurrence: None)
  Receive Date: 20131223
  Receipt Date: 20131223
  Transmission Date: 20140711
  Serious: No
  Sender: FDA-Public Use
  Company Number: None

PATIENT
  Age: 58 Year
  Sex: Female

DRUGS (1)
  1. XELJANZ 5 MG PFIZER [Suspect]
     Indication: RHEUMATOID ARTHRITIS
     Dosage: 10MG THEN 5 MG, 5BID X1MO, QDX1MO, ORAL, COUGH MILDLY IMPROVED
     Route: 048
     Dates: start: 20131025

REACTIONS (3)
  - Productive cough [None]
  - Sputum discoloured [None]
  - Drug ineffective [None]
